FAERS Safety Report 18382457 (Version 1)
Quarter: 2020Q4

REPORT INFORMATION
  Report Type: Spontaneous
  Country: US (occurrence: US)
  Receive Date: 20201014
  Receipt Date: 20201014
  Transmission Date: 20210114
  Serious: Yes (Hospitalization, Disabling)
  Sender: FDA-Public Use
  Company Number: None

PATIENT
  Age: 81 Year
  Sex: Male

DRUGS (14)
  1. VITAMIN C [Concomitant]
     Active Substance: ASCORBIC ACID
  2. LATANOPROST. [Concomitant]
     Active Substance: LATANOPROST
  3. METFORMIN HCL [Suspect]
     Active Substance: METFORMIN HYDROCHLORIDE
     Indication: HYPERGLYCAEMIA
     Dosage: ?          QUANTITY:1 TABLET(S);?
     Route: 048
  4. DONEPEZIL. [Concomitant]
     Active Substance: DONEPEZIL
  5. LISINOPRIL. [Concomitant]
     Active Substance: LISINOPRIL
  6. ECOTRIN [Concomitant]
     Active Substance: ASPIRIN
  7. METOPROLOL. [Concomitant]
     Active Substance: METOPROLOL
  8. VITAMIN B12 [Concomitant]
     Active Substance: CYANOCOBALAMIN
  9. TAMSULOSIN [Concomitant]
     Active Substance: TAMSULOSIN
  10. FLUTICASONE. [Concomitant]
     Active Substance: FLUTICASONE
  11. COLLEGE [Concomitant]
  12. LANSOPRAZOLE. [Concomitant]
     Active Substance: LANSOPRAZOLE
  13. PEPCID [Concomitant]
     Active Substance: FAMOTIDINE
  14. VITAMIN D [Concomitant]
     Active Substance: VITAMIN D NOS

REACTIONS (1)
  - Neoplasm malignant [None]

NARRATIVE: CASE EVENT DATE: 20200501
